FAERS Safety Report 7289326-4 (Version None)
Quarter: 2011Q1

REPORT INFORMATION
  Report Type: 
  Country: None (occurrence: None)
  Receive Date: 20110211
  Receipt Date: 20110203
  Transmission Date: 20110831
  Serious: Yes (Death, Hospitalization)
  Sender: FDA-Public Use
  Company Number: GR-ABBOTT-10P-066-0691552-00

PATIENT
  Age: 66 Year
  Sex: Male
  Weight: 75 kg

DRUGS (10)
  1. METRONIDAZOLE [Suspect]
     Indication: ABDOMINAL INFECTION
     Route: 042
     Dates: start: 20100615, end: 20100617
  2. CLAVULANIC ACID W/TICARCILLIN [Suspect]
     Indication: ABDOMINAL INFECTION
     Route: 042
     Dates: start: 20100615, end: 20100618
  3. METRONIDAZOLE [Suspect]
     Route: 042
     Dates: start: 20100622, end: 20100629
  4. PIPERACILLIN SODIUM W/TAZOBACTAM [Suspect]
     Indication: ABDOMINAL INFECTION
     Route: 042
     Dates: start: 20100609, end: 20100614
  5. PIPERACILLIN SODIUM W/TAZOBACTAM [Suspect]
     Route: 042
     Dates: start: 20100703, end: 20100705
  6. ZURCAZOL IV [Suspect]
     Indication: GASTRITIS PROPHYLAXIS
     Route: 042
     Dates: start: 20100611, end: 20100705
  7. CLAVULANIC ACID W/TICARCILLIN [Suspect]
     Route: 042
     Dates: start: 20100626, end: 20100702
  8. CLAVULANIC ACID W/TICARCILLIN [Suspect]
     Route: 042
     Dates: start: 20100619, end: 20100625
  9. INNOHEP [Suspect]
     Indication: ANTICOAGULANT THERAPY
     Route: 058
     Dates: start: 20100610, end: 20100715
  10. PANCORAN [Suspect]
     Indication: CARDIAC FAILURE
     Route: 062
     Dates: start: 20100703, end: 20100705

REACTIONS (2)
  - DEATH [None]
  - POST PROCEDURAL HAEMORRHAGE [None]
